FAERS Safety Report 4491198-8 (Version None)
Quarter: 2004Q3

REPORT INFORMATION
  Report Type: 
  Country: None (occurrence: None)
  Receive Date: 20040927
  Receipt Date: 20040803
  Transmission Date: 20050211
  Serious: No
  Sender: FDA-Public Use
  Company Number: USA040874517

PATIENT
  Sex: Female

DRUGS (2)
  1. STRATTERA [Suspect]
     Dosage: 40 MG IN THE EVENING
     Dates: start: 20040802
  2. VITAMINS NOS [Concomitant]

REACTIONS (5)
  - CHILLS [None]
  - FEELING COLD [None]
  - INSOMNIA [None]
  - NERVOUSNESS [None]
  - TENSION [None]
